FAERS Safety Report 7198873-5 (Version None)
Quarter: 2010Q4

REPORT INFORMATION
  Report Type: 
  Country: None (occurrence: None)
  Receive Date: 20101227
  Receipt Date: 20101125
  Transmission Date: 20110411
  Serious: Yes (Other)
  Sender: FDA-Public Use
  Company Number: JP-PFIZER INC-2010179065

PATIENT
  Age: 85 Year
  Sex: Male

DRUGS (14)
  1. HYDROXYZINE HCL [Suspect]
     Indication: INSOMNIA
     Dosage: UNK
     Route: 048
     Dates: start: 20100402, end: 20100415
  2. ACYCLOVIR [Suspect]
     Dosage: UNK
     Route: 042
     Dates: start: 20100404, end: 20100412
  3. WINTERMIN [Suspect]
     Dosage: UNK
     Dates: start: 20100402, end: 20100415
  4. LANSOPRAZOLE [Suspect]
     Dosage: 15 MG, UNK
     Dates: start: 20100406, end: 20101126
  5. PHENOBARBITONE [Suspect]
     Indication: HALLUCINATION
     Dosage: 0.4 IU, UNK
     Dates: start: 20100214, end: 20100415
  6. ZYPREXA [Suspect]
     Dosage: 5 MG, UNK
     Dates: start: 20100219, end: 20100419
  7. MYSLEE [Suspect]
     Indication: INSOMNIA
     Dosage: 5 MG, UNK
     Dates: start: 20100405, end: 20100412
  8. VEGETAMIN A [Suspect]
     Indication: INSOMNIA
     Dosage: 1 IU, UNK
     Dates: start: 20100222, end: 20100421
  9. MAGNESIUM OXIDE [Concomitant]
  10. HYDERGINE [Concomitant]
  11. ASPIRIN [Concomitant]
  12. PANCREAZE [Concomitant]
  13. NEUROVITAN [Concomitant]
  14. SILECE [Concomitant]

REACTIONS (2)
  - HEPATIC FUNCTION ABNORMAL [None]
  - JAUNDICE [None]
